FAERS Safety Report 23682403 (Version 3)
Quarter: 2024Q2

REPORT INFORMATION
  Report Type: Report from Study
  Country: DE (occurrence: DE)
  Receive Date: 20240328
  Receipt Date: 20240409
  Transmission Date: 20240716
  Serious: Yes (Life-Threatening, Hospitalization)
  Sender: FDA-Public Use
  Company Number: DE-JNJFOC-20240365411

PATIENT
  Age: 50 Year
  Sex: Male
  Weight: 80 kg

DRUGS (9)
  1. SIMPONI [Suspect]
     Active Substance: GOLIMUMAB
     Indication: Colitis ulcerative
     Route: 058
     Dates: start: 20181009, end: 20190202
  2. STELARA [Suspect]
     Active Substance: USTEKINUMAB
     Indication: Colitis ulcerative
     Route: 058
     Dates: start: 20210413, end: 20210502
  3. ENTYVIO [Concomitant]
     Active Substance: VEDOLIZUMAB
     Dates: start: 20190313, end: 20200305
  4. ENTYVIO [Concomitant]
     Active Substance: VEDOLIZUMAB
     Dates: start: 20200306, end: 20201029
  5. VEDOLIZUMAB [Concomitant]
     Active Substance: VEDOLIZUMAB
     Route: 058
     Dates: start: 20201110, end: 20210412
  6. BUDESONIDE [Concomitant]
     Active Substance: BUDESONIDE
     Dates: start: 201812, end: 201902
  7. BUDESONIDE [Concomitant]
     Active Substance: BUDESONIDE
     Dates: start: 201902, end: 20190415
  8. MESALAMINE [Concomitant]
     Active Substance: MESALAMINE
     Dates: start: 201803
  9. MESALAMINE [Concomitant]
     Active Substance: MESALAMINE
     Dates: start: 201812, end: 20190421

REACTIONS (1)
  - Liver abscess [Recovered/Resolved]

NARRATIVE: CASE EVENT DATE: 20240210
